FAERS Safety Report 5129132-X (Version None)
Quarter: 2006Q4

REPORT INFORMATION
  Report Type: 
  Country: None (occurrence: None)
  Receive Date: 20061011
  Receipt Date: 20060920
  Transmission Date: 20070319
  Serious: Yes (Hospitalization)
  Sender: FDA-Public Use
  Company Number: CA200609006495

PATIENT
  Sex: Female

DRUGS (2)
  1. FORTEO [Suspect]
     Indication: OSTEOPOROSIS
     Dosage: 20 UG, DAILY (1/D)
     Dates: start: 20060911
  2. FORTEO [Concomitant]

REACTIONS (3)
  - ABDOMINAL DISTENSION [None]
  - ABDOMINAL PAIN [None]
  - PHARMACEUTICAL PRODUCT COMPLAINT [None]
